FAERS Safety Report 15784896 (Version 2)
Quarter: 2020Q1

REPORT INFORMATION
  Report Type: Spontaneous
  Country: US (occurrence: US)
  Receive Date: 20190103
  Receipt Date: 20200311
  Transmission Date: 20200409
  Serious: Yes (Disabling, Other)
  Sender: FDA-Public Use
  Company Number: US-TORRENT-00007361

PATIENT
  Age: 71 Year
  Sex: Female
  Weight: 72 kg

DRUGS (1)
  1. LOSARTAN POTASSIUM. [Suspect]
     Active Substance: LOSARTAN POTASSIUM
     Indication: HYPERTENSION
     Route: 048
     Dates: start: 201604, end: 2017

REACTIONS (3)
  - Dizziness [Recovered/Resolved]
  - Impaired driving ability [Unknown]
  - Depressed level of consciousness [Unknown]
